FAERS Safety Report 7719334-8 (Version None)
Quarter: 2011Q3

REPORT INFORMATION
  Report Type: 
  Country: None (occurrence: None)
  Receive Date: 20110830
  Receipt Date: 20110818
  Transmission Date: 20111222
  Serious: Yes (Other)
  Sender: FDA-Public Use
  Company Number: US-JNJFOC-20110809233

PATIENT
  Sex: Female

DRUGS (2)
  1. ZYRTEC [Suspect]
     Indication: MULTIPLE ALLERGIES
     Route: 048
  2. ZYRTEC [Suspect]
     Route: 048

REACTIONS (2)
  - PRURITUS [None]
  - DEPENDENCE [None]
